FAERS Safety Report 7003352-1 (Version None)
Quarter: 2010Q3

REPORT INFORMATION
  Report Type: 
  Country: None (occurrence: None)
  Receive Date: 20100920
  Receipt Date: 20100908
  Transmission Date: 20110219
  Serious: No
  Sender: FDA-Public Use
  Company Number: US-PFIZER INC-2010092823

PATIENT
  Sex: Male
  Weight: 68.027 kg

DRUGS (5)
  1. NEURONTIN [Suspect]
     Indication: NEUROPATHY PERIPHERAL
     Dosage: 300 MG, 2X/DAY
     Route: 048
     Dates: start: 20100712, end: 20100718
  2. NORVIR [Concomitant]
     Indication: HIV TEST POSITIVE
     Dosage: UNK
  3. REYATAZ [Concomitant]
     Indication: HIV TEST POSITIVE
     Dosage: UNK
  4. VIRAMUNE [Concomitant]
     Indication: HIV TEST POSITIVE
     Dosage: UNK
  5. EPZICOM [Concomitant]
     Indication: HIV TEST POSITIVE
     Dosage: UNK

REACTIONS (10)
  - DISTURBANCE IN ATTENTION [None]
  - DRUG EFFECT INCREASED [None]
  - FATIGUE [None]
  - FEELING ABNORMAL [None]
  - GINGIVAL DISORDER [None]
  - HYPOAESTHESIA [None]
  - INSOMNIA [None]
  - IRRITABILITY [None]
  - PERSONALITY CHANGE [None]
  - TINNITUS [None]
